FAERS Safety Report 11283656 (Version 2)
Quarter: 2015Q3

REPORT INFORMATION
  Report Type: Spontaneous
  Country: US (occurrence: US)
  Receive Date: 20150720
  Receipt Date: 20150729
  Transmission Date: 20151125
  Serious: Yes (Other)
  Sender: FDA-Public Use
  Company Number: US-PFIZER INC-2015237654

PATIENT
  Age: 55 Year
  Sex: Male
  Weight: 111 kg

DRUGS (2)
  1. VIAGRA [Suspect]
     Active Substance: SILDENAFIL CITRATE
     Dosage: 100 MG, 2X/DAY
  2. VIAGRA [Suspect]
     Active Substance: SILDENAFIL CITRATE
     Indication: ERECTILE DYSFUNCTION
     Dosage: 100 MG, UNK
     Dates: start: 1985

REACTIONS (5)
  - Neuropathy peripheral [Unknown]
  - Intentional product misuse [Unknown]
  - Diabetes mellitus [Unknown]
  - Hypertension [Unknown]
  - Intentional product use issue [Unknown]
